FAERS Safety Report 23545131 (Version 1)
Quarter: 2024Q1

REPORT INFORMATION
  Report Type: Spontaneous
  Country: US (occurrence: US)
  Receive Date: 20240220
  Receipt Date: 20240220
  Transmission Date: 20240409
  Serious: No
  Sender: FDA-Public Use
  Company Number: US-PFIZER INC-202400042875

PATIENT
  Age: 17 Year
  Sex: Female

DRUGS (1)
  1. OXBRYTA [Suspect]
     Active Substance: VOXELOTOR
     Dosage: 1000 MG DAILY WHILE TITRATING UP TO MTD (MAINTENANCE DOSE) (I.E., 1500 MG)

REACTIONS (2)
  - Diarrhoea [Unknown]
  - Off label use [Unknown]
